FAERS Safety Report 6508851-4 (Version None)
Quarter: 2009Q4

REPORT INFORMATION
  Report Type: 
  Country: None (occurrence: None)
  Receive Date: 20091221
  Receipt Date: 20090807
  Transmission Date: 20100525
  Serious: No
  Sender: FDA-Public Use
  Company Number: US-ASTRAZENECA-2009SE07467

PATIENT
  Sex: Female
  Weight: 56.2 kg

DRUGS (4)
  1. CRESTOR [Suspect]
     Route: 048
  2. PRILOSEC [Concomitant]
  3. VITAMINS [Concomitant]
  4. CALCIUM [Concomitant]

REACTIONS (3)
  - DRUG DOSE OMISSION [None]
  - PRURITUS [None]
  - RASH [None]
